FAERS Safety Report 14532961 (Version 2)
Quarter: 2018Q4

REPORT INFORMATION
  Report Type: Report from Study
  Country: DE (occurrence: DE)
  Receive Date: 20180215
  Receipt Date: 20181030
  Transmission Date: 20190204
  Serious: Yes (Other)
  Sender: FDA-Public Use
  Company Number: DE-ROCHE-2068239

PATIENT
  Age: 66 Year
  Sex: Female

DRUGS (4)
  1. M-LONG [Concomitant]
  2. RITUXIMAB. [Suspect]
     Active Substance: RITUXIMAB
     Indication: RHEUMATOID ARTHRITIS
     Route: 042
  3. OMEPRAZOL [Concomitant]
     Active Substance: OMEPRAZOLE
  4. VIGANTOL OIL [Concomitant]

REACTIONS (1)
  - Basal cell carcinoma [Recovered/Resolved]

NARRATIVE: CASE EVENT DATE: 201705
